FAERS Safety Report 8351185-6 (Version None)
Quarter: 2012Q2

REPORT INFORMATION
  Report Type: 
  Country: None (occurrence: None)
  Receive Date: 20120510
  Receipt Date: 20120509
  Transmission Date: 20120825
  Serious: No
  Sender: FDA-Public Use
  Company Number: US-PFIZER INC-2012113754

PATIENT
  Sex: Female
  Weight: 94.331 kg

DRUGS (2)
  1. CHANTIX [Suspect]
     Indication: SMOKING CESSATION THERAPY
     Dosage: 0.5 MG, 1X/DAY
     Route: 048
     Dates: start: 20110101
  2. CHANTIX [Suspect]
     Dosage: UNK
     Route: 048
     Dates: end: 20110101

REACTIONS (3)
  - VARICOSE VEIN [None]
  - RASH [None]
  - SKIN BURNING SENSATION [None]
